FAERS Safety Report 8096379-2 (Version None)
Quarter: 2012Q1

REPORT INFORMATION
  Report Type: 
  Country: None (occurrence: None)
  Receive Date: 20120129
  Receipt Date: 20111104
  Transmission Date: 20120608
  Serious: No
  Sender: FDA-Public Use
  Company Number: US-ABBOTT-11P-163-0872678-00

PATIENT
  Sex: Female
  Weight: 52.21 kg

DRUGS (2)
  1. HUMIRA [Suspect]
     Indication: CROHN'S DISEASE
     Dosage: CROHN'S STARTER PACK.1ST LOADING DOSE,ONCE
     Route: 058
  2. HUMIRA [Suspect]
     Dosage: 2ND LOADING DOSE, ONCE
     Route: 058
     Dates: start: 20111013, end: 20111013

REACTIONS (1)
  - ANORECTAL DISORDER [None]
